FAERS Safety Report 20016626 (Version 1)
Quarter: 2021Q4

REPORT INFORMATION
  Report Type: Spontaneous
  Country: US (occurrence: None)
  Receive Date: 20211104
  Receipt Date: 20211104
  Transmission Date: 20220303
  Serious: Yes (Other)
  Sender: FDA-Public Use
  Company Number: None

PATIENT
  Age: 58 Year
  Sex: Female

DRUGS (19)
  1. ADALIMUMAB [Suspect]
     Active Substance: ADALIMUMAB
     Indication: Rheumatoid arthritis
     Dosage: OTHER FREQUENCY : EVERY TWO WEEKS;?
     Route: 058
     Dates: start: 20210922, end: 20211011
  2. METHOTREXATE [Concomitant]
     Active Substance: METHOTREXATE
  3. SUMATRIPTAN [Concomitant]
     Active Substance: SUMATRIPTAN
  4. HYDROXYCHLOROQUINE [Concomitant]
     Active Substance: HYDROXYCHLOROQUINE
  5. LORAZEPAM [Concomitant]
     Active Substance: LORAZEPAM
  6. ONDANSETRON [Concomitant]
     Active Substance: ONDANSETRON
  7. LISINOPRIL [Concomitant]
     Active Substance: LISINOPRIL
  8. KETOROLAC [Concomitant]
     Active Substance: KETOROLAC TROMETHAMINE
  9. FOLIC ACID [Concomitant]
     Active Substance: FOLIC ACID
  10. RESTASIS [Concomitant]
     Active Substance: CYCLOSPORINE
  11. HERBALS\TURMERIC [Concomitant]
     Active Substance: HERBALS\TURMERIC
  12. METFORMIN [Concomitant]
     Active Substance: METFORMIN HYDROCHLORIDE
  13. TRULICITY [Concomitant]
     Active Substance: DULAGLUTIDE
  14. VITAMIN C [Concomitant]
     Active Substance: ASCORBIC ACID
  15. TIZANIDINE [Concomitant]
     Active Substance: TIZANIDINE
  16. ATORVASTATIN [Concomitant]
     Active Substance: ATORVASTATIN
  17. RIZATRIPTAN [Concomitant]
     Active Substance: RIZATRIPTAN
  18. VITAMINS [Concomitant]
     Active Substance: VITAMINS
  19. LEVOTHYROXINE [Concomitant]
     Active Substance: LEVOTHYROXINE

REACTIONS (3)
  - Lip swelling [None]
  - Swollen tongue [None]
  - Post procedural complication [None]

NARRATIVE: CASE EVENT DATE: 20210924
